FAERS Safety Report 15993728 (Version 1)
Quarter: 2019Q1

REPORT INFORMATION
  Report Type: Spontaneous
  Country: CA (occurrence: CA)
  Receive Date: 20190222
  Receipt Date: 20190222
  Transmission Date: 20190418
  Serious: Yes (Other)
  Sender: FDA-Public Use
  Company Number: CA-SA-2019SA028123

PATIENT
  Age: 43 Year
  Sex: Female
  Weight: 84 kg

DRUGS (4)
  1. DILTIAZEM. [Concomitant]
     Active Substance: DILTIAZEM
     Dosage: 120 MG, QD
     Route: 048
  2. ZOLON [ZOPICLONE] [Concomitant]
     Dosage: 100 MG
     Route: 048
  3. SILMAR [Concomitant]
     Dosage: 3 MG, QD
     Route: 048
  4. LEMTRADA [Suspect]
     Active Substance: ALEMTUZUMAB
     Dosage: 12 MG
     Route: 041
     Dates: start: 201708, end: 201808

REACTIONS (7)
  - Thyroid mass [Unknown]
  - Depression [Unknown]
  - Tremor [Unknown]
  - Anti-thyroid antibody positive [Recovering/Resolving]
  - Mood altered [Unknown]
  - Parathyroid tumour benign [Unknown]
  - Thyroid adenoma [Unknown]

NARRATIVE: CASE EVENT DATE: 201804
